FAERS Safety Report 23991918 (Version 1)
Quarter: 2024Q2

REPORT INFORMATION
  Report Type: Report from Study
  Country: US (occurrence: US)
  Receive Date: 20240620
  Receipt Date: 20240620
  Transmission Date: 20240717
  Serious: Yes (Other)
  Sender: FDA-Public Use
  Company Number: US-ABBVIE-5610787

PATIENT
  Sex: Male

DRUGS (4)
  1. SKYRIZI [Suspect]
     Active Substance: RISANKIZUMAB-RZAA
     Indication: Psoriasis
     Dosage: FORM STRENGTH: 150 MG, STOP DATE: 2023
     Route: 058
     Dates: start: 20230315
  2. SKYRIZI [Suspect]
     Active Substance: RISANKIZUMAB-RZAA
     Dosage: WEEK 4 THEN EVERY 12 WEEKS THEREAFTER
     Route: 058
     Dates: start: 20230707
  3. SKYRIZI [Suspect]
     Active Substance: RISANKIZUMAB-RZAA
     Dosage: FORM STRENGTH: 150 MG
     Route: 058
     Dates: start: 20230609, end: 20230609
  4. OZEMPIC [Suspect]
     Active Substance: SEMAGLUTIDE
     Indication: Diabetes mellitus
     Route: 065

REACTIONS (11)
  - Arterial occlusive disease [Unknown]
  - Rash macular [Unknown]
  - Dyspnoea [Unknown]
  - Skin discolouration [Unknown]
  - Dry skin [Unknown]
  - Weight decreased [Unknown]
  - Skin discolouration [Unknown]
  - Arthritis [Unknown]
  - Diabetes mellitus [Unknown]
  - Pruritus [Unknown]
  - Arthralgia [Unknown]

NARRATIVE: CASE EVENT DATE: 20230101
